FAERS Safety Report 20101310 (Version 1)
Quarter: 2021Q4

REPORT INFORMATION
  Report Type: Spontaneous
  Country: FR (occurrence: FR)
  Receive Date: 20211123
  Receipt Date: 20211123
  Transmission Date: 20220303
  Serious: Yes (Death)
  Sender: FDA-Public Use
  Company Number: FR-CHIESI-2021CHF05874

PATIENT
  Age: 38 Year
  Sex: Male

DRUGS (2)
  1. CUROSURF [Suspect]
     Active Substance: PORACTANT ALFA
     Indication: COVID-19
     Dosage: UNK
     Route: 065
  2. CUROSURF [Suspect]
     Active Substance: PORACTANT ALFA
     Indication: Off label use

REACTIONS (3)
  - Death [Fatal]
  - Off label use [Unknown]
  - Off label use [Unknown]
